FAERS Safety Report 16695118 (Version 1)
Quarter: 2019Q3

REPORT INFORMATION
  Report Type: Other
  Country: IN (occurrence: IN)
  Receive Date: 20190813
  Receipt Date: 20190813
  Transmission Date: 20191004
  Serious: Yes (Other)
  Sender: FDA-Public Use
  Company Number: IN-DEXPHARM-20190591

PATIENT
  Age: 64 Year
  Sex: Female

DRUGS (1)
  1. DICLOFENAC NON DEXCEL PRODUCT [Suspect]
     Active Substance: DICLOFENAC
     Indication: PAIN
     Route: 062

REACTIONS (2)
  - Agitation [Recovering/Resolving]
  - Altered state of consciousness [Recovering/Resolving]
